FAERS Safety Report 10897558 (Version 1)
Quarter: 2015Q1

REPORT INFORMATION
  Report Type: Spontaneous
  Country: US (occurrence: None)
  Receive Date: 20150302
  Receipt Date: 20150302
  Transmission Date: 20150721
  Serious: No
  Sender: FDA-Public Use
  Company Number: None

PATIENT
  Age: 65 Year
  Sex: Female
  Weight: 56.7 kg

DRUGS (3)
  1. TRIAMCINOLONE ACETONIDE. [Concomitant]
     Active Substance: TRIAMCINOLONE ACETONIDE
  2. PREDNISONE 20 MG QUALITEST [Suspect]
     Active Substance: PREDNISONE
     Indication: HYPERSENSITIVITY
     Dosage: 3 PILLS (60 MG), PER DOSE, ONCE DAILY, TAKEN BY MOUTH
     Route: 048
     Dates: start: 20150206, end: 20150210
  3. CLOBETASOL [Concomitant]
     Active Substance: CLOBETASOL

REACTIONS (5)
  - Illusion [None]
  - Insomnia [None]
  - Erythema [None]
  - Dyspepsia [None]
  - Feeling abnormal [None]

NARRATIVE: CASE EVENT DATE: 20150209
